FAERS Safety Report 10797293 (Version 9)
Quarter: 2017Q1

REPORT INFORMATION
  Report Type: Report from Study
  Country: AU (occurrence: AU)
  Receive Date: 20150216
  Receipt Date: 20170125
  Transmission Date: 20170428
  Serious: Yes (Death, Life-Threatening, Hospitalization, Disabling)
  Sender: FDA-Public Use
  Company Number: AU-JNJFOC-20150203346

PATIENT
  Age: 56 Year
  Sex: Male
  Weight: 123 kg

DRUGS (4)
  1. METFORMIN [Concomitant]
     Active Substance: METFORMIN HYDROCHLORIDE
     Route: 065
  2. CANAGLIFLOZIN [Suspect]
     Active Substance: CANAGLIFLOZIN
     Route: 048
  3. CANAGLIFLOZIN [Suspect]
     Active Substance: CANAGLIFLOZIN
     Indication: TYPE 2 DIABETES MELLITUS
     Route: 048
     Dates: start: 20140923, end: 20150128
  4. INSULIN [Concomitant]
     Active Substance: INSULIN NOS
     Dosage: MEAL TIME
     Route: 065

REACTIONS (1)
  - Neuroendocrine carcinoma metastatic [Fatal]

NARRATIVE: CASE EVENT DATE: 20150127
